FAERS Safety Report 11691214 (Version 1)
Quarter: 2015Q4

REPORT INFORMATION
  Report Type: Spontaneous
  Country: US (occurrence: US)
  Receive Date: 20151102
  Receipt Date: 20151102
  Transmission Date: 20160304
  Serious: No
  Sender: FDA-Public Use
  Company Number: US-PERRIGO-15US009389

PATIENT
  Age: 32 Year
  Sex: Female
  Weight: 77.98 kg

DRUGS (1)
  1. NICOTINE MINI [Suspect]
     Active Substance: NICOTINE
     Indication: SMOKING CESSATION THERAPY
     Dosage: 2 MG, EVERY 1 TO 2 HOURS
     Route: 002
     Dates: start: 201509

REACTIONS (1)
  - Oral discomfort [Unknown]

NARRATIVE: CASE EVENT DATE: 201509
